FAERS Safety Report 17375110 (Version 1)
Quarter: 2020Q1

REPORT INFORMATION
  Report Type: Spontaneous
  Country: US (occurrence: US)
  Receive Date: 20200204
  Receipt Date: 20200204
  Transmission Date: 20200409
  Serious: Yes (Life-Threatening, Other)
  Sender: FDA-Public Use
  Company Number: None

PATIENT
  Age: 60 Year
  Sex: Female
  Weight: 47.7 kg

DRUGS (13)
  1. VITAFUSION CALCIUM GUMMY [Concomitant]
  2. ZAFIRLUKAST 20MG TABLET GENERIC FOR ACCOLATE [Suspect]
     Active Substance: ZAFIRLUKAST
     Indication: ASTHMA
     Dosage: ?          QUANTITY:60 TABLET(S);?
     Route: 048
     Dates: start: 20200121, end: 20200201
  3. LEVOTHYROXINE. [Concomitant]
     Active Substance: LEVOTHYROXINE
  4. NEBULIZER [Concomitant]
     Active Substance: DEVICE
  5. PREDNISONE. [Concomitant]
     Active Substance: PREDNISONE
  6. ONE A DAY IMMUNITY SUPPOT MULT-VITAMIN GUMMY [Concomitant]
  7. PEPCID AC [Concomitant]
     Active Substance: FAMOTIDINE
  8. GAS-X [Concomitant]
     Active Substance: DIMETHICONE
  9. DUONEB [Concomitant]
     Active Substance: ALBUTEROL SULFATE\IPRATROPIUM BROMIDE
  10. VENTOLIN [Concomitant]
     Active Substance: ALBUTEROL SULFATE
  11. PULMICORT TURBUHALER [Concomitant]
     Active Substance: BUDESONIDE
  12. ZYRTEC [Concomitant]
     Active Substance: CETIRIZINE HYDROCHLORIDE
  13. VITAMIN B12 SUBLINGUAL [Concomitant]

REACTIONS (2)
  - Anaphylactic reaction [None]
  - Neuropathy peripheral [None]

NARRATIVE: CASE EVENT DATE: 20200202
